FAERS Safety Report 25603978 (Version 1)
Quarter: 2025Q3

REPORT INFORMATION
  Report Type: Report from Study
  Country: CN (occurrence: CN)
  Receive Date: 20250725
  Receipt Date: 20250725
  Transmission Date: 20251021
  Serious: Yes (Other)
  Sender: ROCHE
  Company Number: CN-ROCHE-10000338365

PATIENT
  Age: 80 Year
  Sex: Male

DRUGS (1)
  1. POLATUZUMAB VEDOTIN [Suspect]
     Active Substance: POLATUZUMAB VEDOTIN
     Indication: Diffuse large B-cell lymphoma
     Dosage: STRENGTH FREEZE-DRIED DOSAGE FORM 30MG/VIAL
     Route: 042
     Dates: start: 20250616, end: 20250616

REACTIONS (3)
  - Gastrointestinal haemorrhage [Not Recovered/Not Resolved]
  - Anaemia [Not Recovered/Not Resolved]
  - Gastrointestinal lymphoma [Not Recovered/Not Resolved]

NARRATIVE: CASE EVENT DATE: 20250713
